FAERS Safety Report 7807624-X (Version None)
Quarter: 2011Q4

REPORT INFORMATION
  Report Type: 
  Country: None (occurrence: None)
  Receive Date: 20111011
  Receipt Date: 20110926
  Transmission Date: 20120403
  Serious: No
  Sender: FDA-Public Use
  Company Number: US-MUTUAL PHARMACEUTICAL COMPANY, INC.-QLQN20110017

PATIENT
  Sex: Male
  Weight: 90.8 kg

DRUGS (10)
  1. DESONIDE [Concomitant]
     Indication: ROSACEA
     Route: 061
  2. FOLIC ACID [Concomitant]
     Indication: VITAMIN SUPPLEMENTATION
     Route: 048
  3. LEVETIRACETAM [Concomitant]
     Indication: EPILEPSY
     Route: 048
  4. COLCHICINE [Suspect]
     Indication: CONSTIPATION
     Route: 048
  5. MIRAPEX [Concomitant]
     Indication: RESTLESS LEGS SYNDROME
     Route: 048
  6. AMITIZA [Concomitant]
     Indication: CONSTIPATION
     Route: 048
  7. DOXCYCLINE [Concomitant]
     Indication: ROSACEA
     Route: 048
  8. LISINOPRIL [Concomitant]
     Indication: HYPERTENSION
     Route: 048
  9. AMLODIPINE [Concomitant]
     Indication: HYPERTENSION
     Route: 048
  10. QUALAQUIN [Suspect]
     Indication: RESTLESS LEGS SYNDROME
     Route: 048
     Dates: start: 20110105, end: 20110925

REACTIONS (5)
  - OFF LABEL USE [None]
  - NERVOUSNESS [None]
  - ECCHYMOSIS [None]
  - RESTLESSNESS [None]
  - HYPOACUSIS [None]
